FAERS Safety Report 13413086 (Version 1)
Quarter: 2017Q2

REPORT INFORMATION
  Report Type: Spontaneous
  Country: US (occurrence: US)
  Receive Date: 20170406
  Receipt Date: 20170406
  Transmission Date: 20170830
  Serious: No
  Sender: FDA-Public Use
  Company Number: US-JNJFOC-20170327124

PATIENT
  Age: 9 Year
  Sex: Male

DRUGS (1)
  1. RISPERDAL [Suspect]
     Active Substance: RISPERIDONE
     Indication: SLEEP DISORDER
     Route: 048
     Dates: start: 200809

REACTIONS (6)
  - Gynaecomastia [Unknown]
  - Galactorrhoea [Unknown]
  - Weight increased [Unknown]
  - Product use in unapproved indication [Unknown]
  - Increased appetite [Unknown]
  - Off label use [Unknown]

NARRATIVE: CASE EVENT DATE: 200809
